FAERS Safety Report 21585982 (Version 1)
Quarter: 2022Q4

REPORT INFORMATION
  Report Type: Spontaneous
  Country: JP (occurrence: JP)
  Receive Date: 20221111
  Receipt Date: 20221111
  Transmission Date: 20230113
  Serious: Yes (Other)
  Sender: FDA-Public Use
  Company Number: JP-ANIPHARMA-2022-JP-000491

PATIENT
  Sex: Male

DRUGS (3)
  1. CASODEX [Suspect]
     Active Substance: BICALUTAMIDE
     Indication: Prostate cancer
     Dosage: 80 MG QD
     Route: 048
  2. NIVOLUMAB [Concomitant]
     Active Substance: NIVOLUMAB
     Route: 065
  3. IPILIMUMAB [Concomitant]
     Active Substance: IPILIMUMAB
     Route: 065

REACTIONS (1)
  - Oesophageal carcinoma [Unknown]
